FAERS Safety Report 23679878 (Version 1)
Quarter: 2024Q1

REPORT INFORMATION
  Report Type: Spontaneous
  Country: CN (occurrence: None)
  Receive Date: 20240327
  Receipt Date: 20240327
  Transmission Date: 20240409
  Serious: Yes (Hospitalization, Other)
  Sender: FDA-Public Use
  Company Number: 2024A070442

PATIENT
  Age: 3811 Week
  Sex: Male
  Weight: 31 kg

DRUGS (1)
  1. OSIMERTINIB MESYLATE [Suspect]
     Active Substance: OSIMERTINIB MESYLATE
     Indication: Product used for unknown indication
     Route: 048
     Dates: start: 20231026, end: 20240307

REACTIONS (6)
  - Abdominal pain [Recovered/Resolved]
  - Anal incontinence [Unknown]
  - Marasmus [Unknown]
  - Abnormal loss of weight [Unknown]
  - Malnutrition [Unknown]
  - Diarrhoea [Recovered/Resolved]

NARRATIVE: CASE EVENT DATE: 20240307
